FAERS Safety Report 8470762-5 (Version None)
Quarter: 2012Q2

REPORT INFORMATION
  Report Type: 
  Country: None (occurrence: None)
  Receive Date: 20120627
  Receipt Date: 20120619
  Transmission Date: 20120825
  Serious: Yes (Hospitalization)
  Sender: FDA-Public Use
  Company Number: US-BAYER-2012-062311

PATIENT
  Age: 17 Year
  Sex: Female
  Weight: 50.794 kg

DRUGS (3)
  1. YAZ [Suspect]
     Indication: DYSMENORRHOEA
     Dosage: UNK
  2. CLARITIN [Concomitant]
     Dosage: PRN
  3. AZITHROMYCIN [Concomitant]
     Dosage: 250 MG, UNK
     Route: 048
     Dates: start: 20100508

REACTIONS (2)
  - DEEP VEIN THROMBOSIS [None]
  - PULMONARY EMBOLISM [None]
